FAERS Safety Report 8959912 (Version 1)
Quarter: 2012Q4

REPORT INFORMATION
  Report Type: 
  Country: CA (occurrence: CA)
  Receive Date: 20121211
  Receipt Date: 20121211
  Transmission Date: 20130627
  Serious: Yes (Other)
  Sender: FDA-Public Use
  Company Number: PHMT2007CA00940

PATIENT
  Sex: Female
  Weight: 53 kg

DRUGS (2)
  1. XOLAIR [Suspect]
     Indication: ASTHMA
     Dosage: 300 mg, UNK
     Route: 058
     Dates: start: 20060616
  2. DIOVAN [Interacting]
     Dosage: 80 mg, QD

REACTIONS (19)
  - Tachycardia [Recovering/Resolving]
  - Heart rate irregular [Recovering/Resolving]
  - Hypersensitivity [Unknown]
  - Blood pressure increased [Unknown]
  - Malaise [Recovering/Resolving]
  - Dizziness [Recovering/Resolving]
  - Asthenia [Recovering/Resolving]
  - Fatigue [Recovering/Resolving]
  - Anxiety [Recovering/Resolving]
  - Ear congestion [Unknown]
  - Nasopharyngitis [Unknown]
  - Oropharyngeal pain [Recovered/Resolved]
  - Chest pain [Recovering/Resolving]
  - Respiratory tract congestion [Unknown]
  - Heart rate increased [Unknown]
  - Contusion [Unknown]
  - Vocal cord disorder [Unknown]
  - Nasal congestion [Unknown]
  - Stress [Unknown]
